FAERS Safety Report 25973992 (Version 1)
Quarter: 2025Q4

REPORT INFORMATION
  Report Type: Other
  Country: GB (occurrence: GB)
  Receive Date: 20251029
  Receipt Date: 20251029
  Transmission Date: 20260118
  Serious: Yes (Hospitalization, Other)
  Sender: STRIDES
  Company Number: GB-PHARMVIT-4556-222327-ER25-RN1619

PATIENT
  Age: 51 Year
  Sex: Male

DRUGS (3)
  1. IBUPROFEN [Suspect]
     Active Substance: IBUPROFEN
     Indication: Product used for unknown indication
     Dosage: 12 GRAMS
     Route: 065
  2. QUININE [Suspect]
     Active Substance: QUININE
     Indication: Product used for unknown indication
     Dosage: 4 GRAMS
     Route: 065
  3. MIRTAZAPINE [Suspect]
     Active Substance: MIRTAZAPINE
     Indication: Product used for unknown indication
     Dosage: 270 MILLIGRAMS
     Route: 065

REACTIONS (2)
  - Blindness [Recovering/Resolving]
  - Overdose [Recovered/Resolved]
